FAERS Safety Report 11791395 (Version 1)
Quarter: 2015Q4

REPORT INFORMATION
  Report Type: Spontaneous
  Country: US (occurrence: US)
  Receive Date: 20151201
  Receipt Date: 20151201
  Transmission Date: 20160305
  Serious: Yes (Death, Hospitalization, Other)
  Sender: FDA-Public Use
  Company Number: US-SHIRE-US-000822

PATIENT
  Age: 69 Year
  Sex: Male

DRUGS (14)
  1. GATTEX [Suspect]
     Active Substance: TEDUGLUTIDE\WATER
     Dosage: HALF OF THE START DOSE, DAILY
     Route: 058
     Dates: start: 2010
  2. LIPIDS NOS W/PROTEINS NOS/VITAMINS NOS [Concomitant]
     Indication: MEDICAL DIET
     Dosage: 3320 ML, 1X/DAY:QD
     Dates: start: 200903, end: 200907
  3. LIPIDS NOS W/PROTEINS NOS/VITAMINS NOS [Concomitant]
     Dates: start: 201010, end: 201011
  4. LIPIDS NOS W/PROTEINS NOS/VITAMINS NOS [Concomitant]
     Dates: start: 201306
  5. LIPIDS NOS W/PROTEINS NOS/VITAMINS NOS [Concomitant]
     Dates: start: 201305, end: 201306
  6. LIPIDS NOS W/PROTEINS NOS/VITAMINS NOS [Concomitant]
     Dates: start: 201303, end: 201305
  7. LIPIDS NOS W/PROTEINS NOS/VITAMINS NOS [Concomitant]
     Dates: start: 2004, end: 200903
  8. LIPIDS NOS W/PROTEINS NOS/VITAMINS NOS [Concomitant]
     Dates: start: 201011, end: 201112
  9. LIPIDS NOS W/PROTEINS NOS/VITAMINS NOS [Concomitant]
     Dates: start: 201112, end: 201301
  10. LIPIDS NOS W/PROTEINS NOS/VITAMINS NOS [Concomitant]
     Dates: start: 201301, end: 201303
  11. LIPIDS NOS W/PROTEINS NOS/VITAMINS NOS [Concomitant]
     Dates: start: 200907, end: 201004
  12. GATTEX [Suspect]
     Active Substance: TEDUGLUTIDE\WATER
     Indication: SHORT-BOWEL SYNDROME
     Dosage: UNK, 1X/DAY:QD
     Route: 058
     Dates: start: 200812, end: 2010
  13. LIPIDS NOS W/PROTEINS NOS/VITAMINS NOS [Concomitant]
     Dates: start: 201008, end: 201010
  14. LIPIDS NOS W/PROTEINS NOS/VITAMINS NOS [Concomitant]
     Dates: start: 201004, end: 201008

REACTIONS (47)
  - Cardiomyopathy [Not Recovered/Not Resolved]
  - Peripheral artery aneurysm [Not Recovered/Not Resolved]
  - Mitral valve incompetence [Unknown]
  - Cholecystitis chronic [Unknown]
  - Euphoric mood [Recovered/Resolved]
  - Rales [Unknown]
  - Ejection fraction decreased [Unknown]
  - Pancreatitis chronic [Not Recovered/Not Resolved]
  - Dizziness [Unknown]
  - Atrial fibrillation [Recovered/Resolved]
  - Cholecystitis acute [Recovered/Resolved]
  - Brunner^s gland hyperplasia [Not Recovered/Not Resolved]
  - Oedema peripheral [Unknown]
  - Aortic stenosis [Unknown]
  - Osteomyelitis [Unknown]
  - Cardiomegaly [Not Recovered/Not Resolved]
  - Aortic arteriosclerosis [Not Recovered/Not Resolved]
  - Tachycardia [Unknown]
  - Fall [Unknown]
  - Increased appetite [Recovered/Resolved]
  - Large intestine polyp [Not Recovered/Not Resolved]
  - Dyspnoea [Unknown]
  - Cardiac failure congestive [Recovered/Resolved]
  - Medical device site abscess [Not Recovered/Not Resolved]
  - Weight decreased [Unknown]
  - Liver disorder [Not Recovered/Not Resolved]
  - Adenoma benign [Not Recovered/Not Resolved]
  - Fatigue [Unknown]
  - Haemorrhage coronary artery [Fatal]
  - Dilatation ventricular [Unknown]
  - Aortic aneurysm [Not Recovered/Not Resolved]
  - Sepsis [Not Recovered/Not Resolved]
  - Dehydration [Unknown]
  - Blood urea nitrogen/creatinine ratio increased [Unknown]
  - Catheter site infection [Unknown]
  - Myocardial ischaemia [Not Recovered/Not Resolved]
  - Back pain [Fatal]
  - Bacteraemia [Unknown]
  - Device related infection [Unknown]
  - Brain natriuretic peptide increased [Unknown]
  - Arteriosclerosis coronary artery [Not Recovered/Not Resolved]
  - Chest pain [Not Recovered/Not Resolved]
  - Hypomania [Recovered/Resolved]
  - Muscular weakness [Unknown]
  - Weight increased [Recovered/Resolved]
  - Gastrointestinal stoma complication [Unknown]
  - Drug dose omission [Unknown]

NARRATIVE: CASE EVENT DATE: 200801
